FAERS Safety Report 10744104 (Version 3)
Quarter: 2015Q1

REPORT INFORMATION
  Report Type: Spontaneous
  Country: DE (occurrence: DE)
  Receive Date: 20150128
  Receipt Date: 20150310
  Transmission Date: 20150721
  Serious: Yes (Hospitalization, Other)
  Sender: FDA-Public Use
  Company Number: DE-AMGEN-DEUSP2015006216

PATIENT
  Age: 84 Year
  Sex: Female
  Weight: 80 kg

DRUGS (2)
  1. PROLIA [Suspect]
     Active Substance: DENOSUMAB
     Indication: OSTEOPOROSIS
     Dosage: UNK, Q6MO
     Route: 065
  2. CEFUROXIME. [Concomitant]
     Active Substance: CEFUROXIME
     Indication: OSTEITIS
     Dosage: 500 UNK, BID
     Route: 048
     Dates: start: 20150120

REACTIONS (5)
  - Post procedural complication [Unknown]
  - Osteonecrosis of jaw [Recovering/Resolving]
  - Impaired healing [Unknown]
  - Jaw disorder [Unknown]
  - Tooth disorder [Unknown]

NARRATIVE: CASE EVENT DATE: 201401
